FAERS Safety Report 21812602 (Version 1)
Quarter: 2023Q1

REPORT INFORMATION
  Report Type: Spontaneous
  Country: CN (occurrence: CN)
  Receive Date: 20230103
  Receipt Date: 20230103
  Transmission Date: 20230418
  Serious: Yes (Disabling, Other)
  Sender: FDA-Public Use
  Company Number: CN-PFIZER INC-PV202200133564

PATIENT
  Age: 57 Year
  Sex: Female
  Weight: 63 kg

DRUGS (2)
  1. EXEMESTANE [Suspect]
     Active Substance: EXEMESTANE
     Indication: Chemotherapy
     Dosage: 25 MG, 1X/DAY
     Route: 048
     Dates: start: 20220716, end: 20220816
  2. ABEMACICLIB [Suspect]
     Active Substance: ABEMACICLIB
     Indication: Chemotherapy
     Dosage: 100 MG, 2X/DAY
     Route: 048
     Dates: start: 20220715, end: 20220816

REACTIONS (1)
  - Drug-induced liver injury [Recovering/Resolving]

NARRATIVE: CASE EVENT DATE: 20220810
